FAERS Safety Report 8810882 (Version 1)
Quarter: 2012Q4

REPORT INFORMATION
  Report Type: Spontaneous
  Country: US (occurrence: None)
  Receive Date: 20120924
  Receipt Date: 20120924
  Transmission Date: 20130627
  Serious: Yes (Other)
  Sender: FDA-Public Use
  Company Number: None

PATIENT
  Weight: 69 kg

DRUGS (1)
  1. FABRAZYME [Suspect]
     Indication: FABRY^S DISEASE
     Route: 042
     Dates: start: 20050201, end: 20120919

REACTIONS (11)
  - Rash erythematous [None]
  - Rash papular [None]
  - Pyrexia [None]
  - Chills [None]
  - Hyperhidrosis [None]
  - Joint stiffness [None]
  - Refusal of treatment by patient [None]
  - Infusion related reaction [None]
  - Headache [None]
  - Nausea [None]
  - Incorrect storage of drug [None]
